FAERS Safety Report 6058044-2 (Version None)
Quarter: 2009Q1

REPORT INFORMATION
  Report Type: 
  Country: None (occurrence: None)
  Receive Date: 20090127
  Receipt Date: 20090120
  Transmission Date: 20090719
  Serious: Yes (Death)
  Sender: FDA-Public Use
  Company Number: 2007-159391-ML

PATIENT
  Sex: Male

DRUGS (1)
  1. ZEMURON [Suspect]
     Dosage: NI, NOT KNOWN AS IT WAS NOT USED FOR A SURGICAL PROCEDURE

REACTIONS (1)
  - VICTIM OF HOMICIDE [None]
